FAERS Safety Report 9924401 (Version 1)
Quarter: 2014Q1

REPORT INFORMATION
  Report Type: Spontaneous
  Country: US (occurrence: None)
  Receive Date: 20140220
  Receipt Date: 20140220
  Transmission Date: 20141002
  Serious: Yes (Other)
  Sender: FDA-Public Use
  Company Number: 2010S1000545

PATIENT
  Age: 72 Year
  Sex: Male
  Weight: 88.91 kg

DRUGS (10)
  1. FLEET PHOSPHO-SODA [Suspect]
     Indication: COLONOSCOPY
     Dosage: 45 ML, 1 IN 25 HOURS, ORAL
     Route: 048
     Dates: start: 20050322, end: 20050322
  2. REGLAN (METOCLOPRAMIDE) [Suspect]
     Indication: COLONOSCOPY
     Dosage: TWO 10 MG, ORAL
     Route: 048
  3. SULAR (NISOLDIPINE) [Concomitant]
  4. ATENOLOL (ATENOLOL) [Concomitant]
  5. ASPIRIN (ACETYLSALICYLIC ACID) [Concomitant]
  6. LISINOPRIL/HCTZ (HYDROCHLOROTHIAZIDE, LISINOPRIL)? [Concomitant]
  7. PRILOSEC (OMEPRAZOLE) [Concomitant]
  8. MULTIVITAMIN (ERGOCALCIFEROL, ASCORBIC ACID, PYRIDOXINE HYDROCHLORIDE, THIAMINE HYDROCHLORIDE, RETINOL, RIBOFLAVIN, NICOTINAMIDE, CALCIUM PANTOTHENATE) [Concomitant]
  9. GLUCOSAMINE (GLUCOSAMINE) [Concomitant]
  10. ACIPHEX (RABERAZOLE SODIUM) [Concomitant]

REACTIONS (4)
  - Renal failure [None]
  - Haemorrhoids [None]
  - Prostatomegaly [None]
  - Nephrosclerosis [None]
